FAERS Safety Report 5682480-7 (Version None)
Quarter: 2008Q1

REPORT INFORMATION
  Report Type: 
  Country: None (occurrence: None)
  Receive Date: 20080327
  Receipt Date: 20080324
  Transmission Date: 20080703
  Serious: Yes (Death, Other)
  Sender: FDA-Public Use
  Company Number: BE-BRISTOL-MYERS SQUIBB COMPANY-14126270

PATIENT
  Age: 70 Year
  Sex: Female

DRUGS (1)
  1. CEFEPIME [Suspect]
     Indication: FEBRILE NEUTROPENIA

REACTIONS (3)
  - COMA [None]
  - MYOCLONUS [None]
  - PNEUMONIA ESCHERICHIA [None]
